FAERS Safety Report 5352000-5 (Version None)
Quarter: 2007Q2

REPORT INFORMATION
  Report Type: 
  Country: None (occurrence: None)
  Receive Date: 20070611
  Receipt Date: 20070605
  Transmission Date: 20071010
  Serious: Yes (Life-Threatening, Hospitalization)
  Sender: FDA-Public Use
  Company Number: PHHO2007DE04953

PATIENT
  Age: 65 Year
  Sex: Male

DRUGS (4)
  1. PREDNISOLONE [Concomitant]
     Indication: RENAL TRANSPLANT
     Dates: start: 20061205
  2. SIMULECT [Concomitant]
     Indication: RENAL TRANSPLANT
     Dates: start: 20061205, end: 20061205
  3. MYCOPHENOLATE MOFETIL [Concomitant]
     Indication: RENAL TRANSPLANT
     Dates: start: 20061205, end: 20070123
  4. CYCLOSPORINE [Suspect]
     Indication: RENAL TRANSPLANT
     Dosage: 900 MG DAILY
     Route: 048
     Dates: start: 20061206, end: 20070123

REACTIONS (8)
  - ANURIA [None]
  - COMPLICATIONS OF TRANSPLANT SURGERY [None]
  - GRAFT ISCHAEMIA [None]
  - HAEMORRHAGIC INFARCTION [None]
  - KIDNEY TRANSPLANT REJECTION [None]
  - NEPHRECTOMY [None]
  - RENAL FAILURE ACUTE [None]
  - SWELLING [None]
